FAERS Safety Report 14349268 (Version 1)
Quarter: 2018Q1

REPORT INFORMATION
  Report Type: Spontaneous
  Country: GB (occurrence: GB)
  Receive Date: 20180104
  Receipt Date: 20180104
  Transmission Date: 20180509
  Serious: Yes (Hospitalization, Disabling)
  Sender: FDA-Public Use
  Company Number: GB-009507513-1801GBR000977

PATIENT
  Age: 64 Year
  Sex: Female

DRUGS (17)
  1. HALOPERIDOL. [Concomitant]
     Active Substance: HALOPERIDOL
     Dosage: 500 UG TWICE A DAY AS REQUIRED (ONLY ONE DOSE ADMINISTERED) ; IN TOTAL
     Dates: start: 20170815
  2. WARFARIN [Concomitant]
     Active Substance: WARFARIN
     Dosage: 1MG MONDAY AND THURSDAY, 2MG REST OF THE WEEK
  3. MIRTAZAPINE. [Suspect]
     Active Substance: MIRTAZAPINE
     Dosage: 15 MG, QD (NIGHT)
     Dates: start: 20170728, end: 20170814
  4. FERROUS SULFATE. [Concomitant]
     Active Substance: FERROUS SULFATE
     Dosage: 600 MG, QD
  5. VITAMIN B (UNSPECIFIED) [Concomitant]
     Active Substance: VITAMIN B
     Dosage: 1 DF, QD
  6. VITAMINS (UNSPECIFIED) [Concomitant]
     Active Substance: VITAMINS
     Dosage: 1 DF, UNK
  7. ZOPICLONE [Concomitant]
     Active Substance: ZOPICLONE
     Dosage: 7.5 MG, QD (NIGHT)
  8. LORAZEPAM. [Concomitant]
     Active Substance: LORAZEPAM
     Dosage: ONLY TWO DOSES ADMINISTERED ; AS NECESSARY
     Dates: start: 20170814
  9. CLOMIPRAMINE HYDROCHLORIDE. [Concomitant]
     Active Substance: CLOMIPRAMINE HYDROCHLORIDE
     Dosage: 100MG MORNING + 150MG NIGHT DOSE , BID
  10. CLOMIPRAMINE HYDROCHLORIDE. [Concomitant]
     Active Substance: CLOMIPRAMINE HYDROCHLORIDE
     Dosage: 150 MG, NIGHT (HS)
     Dates: start: 20170816
  11. SIMVASTATIN. [Concomitant]
     Active Substance: SIMVASTATIN
     Dosage: 40 MG, QD (NIGHT)
  12. FOLIC ACID. [Concomitant]
     Active Substance: FOLIC ACID
     Dosage: 5 MG, QD
  13. PROCYCLIDINE HYDROCHLORIDE [Concomitant]
     Active Substance: PROCYCLIDINE HYDROCHLORIDE
     Dosage: REDUCED TO ONCE DAILY 8/7/2017
  14. OLANZAPINE. [Concomitant]
     Active Substance: OLANZAPINE
     Dosage: 20 MG, QD (AT NIGHT)
  15. CALCIUM CARBONATE (+) CHOLECALCIFEROL [Concomitant]
     Active Substance: CALCIUM CARBONATE\CHOLECALCIFEROL
     Dosage: 1500MG/400UNIT
  16. THIAMINE. [Concomitant]
     Active Substance: THIAMINE
     Dosage: 200 MG, QD
  17. CEPHALEXIN. [Concomitant]
     Active Substance: CEPHALEXIN
     Indication: URINARY TRACT INFECTION
     Dosage: 1500 MG, QD
     Dates: start: 20170704, end: 20170717

REACTIONS (5)
  - Confusional state [Unknown]
  - Mania [Recovered/Resolved]
  - Fall [Unknown]
  - Pressure of speech [Recovered/Resolved]
  - Flight of ideas [Recovered/Resolved]
